FAERS Safety Report 6473888-0 (Version None)
Quarter: 2009Q4

REPORT INFORMATION
  Report Type: 
  Country: None (occurrence: None)
  Receive Date: 20091204
  Receipt Date: 20091126
  Transmission Date: 20100525
  Serious: Yes (Other)
  Sender: FDA-Public Use
  Company Number: JP-BAYER-200914700BYL

PATIENT
  Age: 70 Year
  Sex: Female
  Weight: 44 kg

DRUGS (10)
  1. NEXAVAR [Suspect]
     Indication: RENAL CELL CARCINOMA
     Dosage: TOTAL DAILY DOSE: 800 MG  UNIT DOSE: 200 MG
     Route: 048
     Dates: start: 20090410
  2. NEXAVAR [Suspect]
     Dosage: UNIT DOSE: 200 MG
     Route: 048
     Dates: start: 20090424, end: 20090810
  3. NEXAVAR [Suspect]
     Dosage: UNIT DOSE: 200 MG
     Route: 048
     Dates: start: 20090824
  4. VESICARE [Concomitant]
     Dosage: UNIT DOSE: 5 MG
     Route: 048
     Dates: start: 20090415
  5. RHYTHMY [Concomitant]
     Dosage: UNIT DOSE: 2 MG
     Route: 048
     Dates: start: 20090415
  6. MAGMITT [Concomitant]
     Dosage: UNIT DOSE: 330 MG
     Route: 048
     Dates: start: 20090416
  7. LENDORMIN [Concomitant]
     Dosage: UNIT DOSE: 0.25 MG
     Route: 048
     Dates: start: 20090423
  8. VOLTAREN [Concomitant]
     Route: 048
     Dates: start: 20090430, end: 20090510
  9. LOXONIN [Concomitant]
     Route: 048
     Dates: start: 20090511
  10. OMEPRAL [Concomitant]
     Route: 048
     Dates: start: 20090727

REACTIONS (5)
  - ALOPECIA [None]
  - ARTHRITIS [None]
  - HYPERTENSION [None]
  - PALMAR-PLANTAR ERYTHRODYSAESTHESIA SYNDROME [None]
  - PHOTOSENSITIVITY REACTION [None]
